FAERS Safety Report 8241485-2 (Version None)
Quarter: 2012Q1

REPORT INFORMATION
  Report Type: 
  Country: None (occurrence: None)
  Receive Date: 20120328
  Receipt Date: 20120326
  Transmission Date: 20120608
  Serious: Yes (Other)
  Sender: FDA-Public Use
  Company Number: FR-ROCHE-1033372

PATIENT

DRUGS (1)
  1. MABTHERA [Suspect]
     Indication: CASTLEMAN'S DISEASE

REACTIONS (9)
  - ACUTE MYELOID LEUKAEMIA [None]
  - HERPES VIRUS INFECTION [None]
  - T-CELL CHRONIC LYMPHOCYTIC LEUKAEMIA [None]
  - PNEUMONIA [None]
  - HODGKIN'S DISEASE [None]
  - ENTEROCOLITIS [None]
  - NEUTROPENIA [None]
  - KAPOSI'S SARCOMA [None]
  - ACUTE LYMPHOCYTIC LEUKAEMIA [None]
